FAERS Safety Report 8454267-3 (Version None)
Quarter: 2012Q2

REPORT INFORMATION
  Report Type: 
  Country: None (occurrence: None)
  Receive Date: 20120620
  Receipt Date: 20120607
  Transmission Date: 20120825
  Serious: Yes (Other)
  Sender: FDA-Public Use
  Company Number: CHPA2012US012572

PATIENT
  Age: 46 Year
  Sex: Female

DRUGS (3)
  1. THERAFLU DAYTIME SEVERE COLD + COUGH [Suspect]
     Indication: NASOPHARYNGITIS
     Dosage: 1 DF, BID
     Route: 048
     Dates: start: 20111118, end: 20111124
  2. THERAFLU DAYTIME SEVERE COLD + COUGH [Suspect]
     Dosage: 1 DF, BID
     Route: 048
     Dates: start: 20120118, end: 20120122
  3. THERAFLU DAYTIME SEVERE COLD + COUGH [Suspect]
     Dosage: 1 DF, BID
     Route: 048
     Dates: start: 20111201, end: 20111201

REACTIONS (5)
  - BLOOD GLUCOSE INCREASED [None]
  - MALAISE [None]
  - FATIGUE [None]
  - INFLUENZA [None]
  - TYPE 2 DIABETES MELLITUS [None]
